FAERS Safety Report 7493192-1 (Version None)
Quarter: 2011Q2

REPORT INFORMATION
  Report Type: 
  Country: None (occurrence: None)
  Receive Date: 20110519
  Receipt Date: 20110519
  Transmission Date: 20111010
  Serious: Yes (Life-Threatening)
  Sender: FDA-Public Use
  Company Number: None

PATIENT
  Age: 71 Year
  Sex: Male
  Weight: 100 kg

DRUGS (2)
  1. ARIXTRA [Suspect]
     Indication: DEEP VEIN THROMBOSIS
     Dosage: 10MG DAILY SQ (2 DOSES)
     Route: 058
     Dates: start: 20110123, end: 20110123
  2. ARIXTRA [Suspect]
     Indication: PULMONARY EMBOLISM
     Dosage: 10MG DAILY SQ (2 DOSES)
     Route: 058
     Dates: start: 20110123, end: 20110123

REACTIONS (10)
  - RED BLOOD CELLS CSF POSITIVE [None]
  - GENERAL PHYSICAL HEALTH DETERIORATION [None]
  - HYPOTENSION [None]
  - ENCEPHALOPATHY [None]
  - PARAPLEGIA [None]
  - CONFUSIONAL STATE [None]
  - PULMONARY CONGESTION [None]
  - INCREASED BRONCHIAL SECRETION [None]
  - HAEMODYNAMIC INSTABILITY [None]
  - PNEUMONIA [None]
